FAERS Safety Report 21378028 (Version 1)
Quarter: 2022Q3

REPORT INFORMATION
  Report Type: Spontaneous
  Country: US (occurrence: US)
  Receive Date: 20220926
  Receipt Date: 20220926
  Transmission Date: 20221027
  Serious: Yes (Hospitalization, Other)
  Sender: FDA-Public Use
  Company Number: US-009507513-2209USA007041

PATIENT

DRUGS (6)
  1. KEYTRUDA [Suspect]
     Active Substance: PEMBROLIZUMAB
     Indication: Neoplasm malignant
     Dosage: UNKNOWN MG / EVERY3 WEEKS
     Dates: start: 2019, end: 202108
  2. ALIMTA [Suspect]
     Active Substance: PEMETREXED DISODIUM
     Indication: Neoplasm malignant
     Dosage: 3MG / TWICE DAILY
     Dates: start: 2019, end: 202108
  3. CABOMETYX [Suspect]
     Active Substance: CABOZANTINIB S-MALATE
     Indication: Neoplasm malignant
     Dosage: STARTED AT: 5 MILLIGRAM, BID
     Dates: start: 202202, end: 2022
  4. CABOMETYX [Suspect]
     Active Substance: CABOZANTINIB S-MALATE
     Dosage: DOSE INCREASED AT: 10 MILLIGRAM, BID, WHICH WAS TOO MUCH DOSE
     Dates: start: 2022, end: 2022
  5. CABOMETYX [Suspect]
     Active Substance: CABOZANTINIB S-MALATE
     Dosage: DOSE DECREASED AT 3 MILLIGRAM, BID
     Dates: start: 2022, end: 20220831
  6. OPDIVO [Suspect]
     Active Substance: NIVOLUMAB
     Indication: Neoplasm malignant
     Dosage: UNK
     Dates: start: 202202

REACTIONS (12)
  - Cardio-respiratory arrest [Not Recovered/Not Resolved]
  - Adverse event [Not Recovered/Not Resolved]
  - Ageusia [Unknown]
  - Feeding disorder [Unknown]
  - Ill-defined disorder [Unknown]
  - Wound [Unknown]
  - Hypotension [Unknown]
  - Ill-defined disorder [Unknown]
  - General physical health deterioration [Unknown]
  - Peripheral swelling [Unknown]
  - Diarrhoea [Unknown]
  - Diarrhoea [Unknown]

NARRATIVE: CASE EVENT DATE: 20220101
